FAERS Safety Report 6191282-7 (Version None)
Quarter: 2009Q2

REPORT INFORMATION
  Report Type: 
  Country: None (occurrence: None)
  Receive Date: 20090513
  Receipt Date: 20090513
  Transmission Date: 20091009
  Serious: No
  Sender: FDA-Public Use
  Company Number: None

PATIENT
  Age: 78 Year
  Sex: Female
  Weight: 46.7205 kg

DRUGS (1)
  1. LEVAQUIN [Suspect]
     Indication: URINARY TRACT INFECTION
     Dosage: 500MG 1 DAILY 5 DAY ORAL
     Route: 048
     Dates: start: 20090316, end: 20090321

REACTIONS (3)
  - ARTHRALGIA [None]
  - LETHARGY [None]
  - PAIN IN EXTREMITY [None]
